FAERS Safety Report 19956162 (Version 1)
Quarter: 2021Q4

REPORT INFORMATION
  Report Type: Spontaneous
  Country: US (occurrence: US)
  Receive Date: 20211014
  Receipt Date: 20211014
  Transmission Date: 20220303
  Serious: Yes (Other)
  Sender: FDA-Public Use
  Company Number: US-VALIDUS PHARMACEUTICALS LLC-US-VDP-2021-003266

PATIENT

DRUGS (3)
  1. BUMEX [Suspect]
     Active Substance: BUMETANIDE
     Indication: Pericardial effusion
     Dosage: 1 MG, QD
     Route: 065
  2. BUMEX [Suspect]
     Active Substance: BUMETANIDE
     Indication: Pleural effusion
  3. LENVIMA [Suspect]
     Active Substance: LENVATINIB
     Indication: Endometrial cancer
     Dosage: 10 MG, QD
     Route: 065
     Dates: start: 20210916

REACTIONS (1)
  - Endometrial cancer [Unknown]
